FAERS Safety Report 7636386-4 (Version None)
Quarter: 2011Q3

REPORT INFORMATION
  Report Type: 
  Country: None (occurrence: None)
  Receive Date: 20110726
  Receipt Date: 20110719
  Transmission Date: 20111222
  Serious: Yes (Life-Threatening)
  Sender: FDA-Public Use
  Company Number: IT-GLAXOSMITHKLINE-B0735074A

PATIENT
  Sex: Male

DRUGS (4)
  1. REPAGLINIDE [Suspect]
     Indication: DIABETES MELLITUS
     Dosage: 1010MG PER DAY
     Route: 048
     Dates: start: 19971014, end: 20110713
  2. SIMVASTATIN [Concomitant]
     Route: 065
  3. AVANDAMET [Suspect]
     Indication: DIABETES MELLITUS
     Dosage: 2004MG PER DAY
     Route: 048
     Dates: start: 20070626, end: 20100922
  4. PIOGLITAZONE HYDROCHLORIDE/METFORMIN HYDROCHLORIDE [Suspect]
     Indication: DIABETES MELLITUS
     Dosage: 1730MG PER DAY
     Route: 048
     Dates: start: 20100927, end: 20110607

REACTIONS (2)
  - CARDIAC FAILURE [None]
  - MYOCARDIAL ISCHAEMIA [None]
